FAERS Safety Report 7247936-4 (Version None)
Quarter: 2011Q1

REPORT INFORMATION
  Report Type: 
  Country: None (occurrence: None)
  Receive Date: 20110127
  Receipt Date: 20101105
  Transmission Date: 20110831
  Serious: Yes (Other)
  Sender: FDA-Public Use
  Company Number: US-MYLANLABS-2010S1018276

PATIENT
  Age: 37 Year
  Sex: Male
  Weight: 83.92 kg

DRUGS (1)
  1. BUPROPION HYDROCHLORIDE [Suspect]
     Indication: DEPRESSION
     Dosage: CHANGED Q72H
     Route: 048
     Dates: start: 20100905

REACTIONS (2)
  - PRURITUS [None]
  - RASH GENERALISED [None]
